FAERS Safety Report 21527591 (Version 1)
Quarter: 2022Q4

REPORT INFORMATION
  Report Type: Spontaneous
  Country: CN (occurrence: CN)
  Receive Date: 20221031
  Receipt Date: 20221031
  Transmission Date: 20230113
  Serious: Yes (Other)
  Sender: FDA-Public Use
  Company Number: CN-JNJFOC-20221058309

PATIENT
  Age: 1 Year
  Sex: Female
  Weight: 9.5 kg

DRUGS (3)
  1. CHILDRENS MOTRIN [Suspect]
     Active Substance: IBUPROFEN
     Indication: Pyrexia
     Route: 048
     Dates: start: 20220930, end: 20221001
  2. ACETAMINOPHEN [Suspect]
     Active Substance: ACETAMINOPHEN
     Indication: Pyrexia
     Route: 054
     Dates: start: 20220930, end: 20221001
  3. RIBAVIRIN [Suspect]
     Active Substance: RIBAVIRIN
     Indication: Upper respiratory tract infection
     Route: 041
     Dates: start: 20220929, end: 20221001

REACTIONS (2)
  - White blood cell count decreased [Recovered/Resolved]
  - Neutrophil count decreased [Recovered/Resolved]

NARRATIVE: CASE EVENT DATE: 20221001
